FAERS Safety Report 5910190-7 (Version None)
Quarter: 2008Q4

REPORT INFORMATION
  Report Type: 
  Country: None (occurrence: None)
  Receive Date: 20081007
  Receipt Date: 20071003
  Transmission Date: 20090506
  Serious: No
  Sender: FDA-Public Use
  Company Number: US-ASTRAZENECA-2007UW23023

PATIENT
  Age: 86 Year
  Sex: Female
  Weight: 73.9 kg

DRUGS (4)
  1. ARIMIDEX [Suspect]
     Indication: BREAST CANCER
     Route: 048
     Dates: start: 20050101, end: 20070801
  2. CYMBALTA [Concomitant]
  3. ARICEPT [Concomitant]
  4. FOSAMAX [Concomitant]

REACTIONS (1)
  - NEUROPATHY PERIPHERAL [None]
